FAERS Safety Report 23221126 (Version 3)
Quarter: 2023Q4

REPORT INFORMATION
  Report Type: Report from Study
  Country: CA (occurrence: CA)
  Receive Date: 20231123
  Receipt Date: 20231223
  Transmission Date: 20240110
  Serious: Yes (Other)
  Sender: FDA-Public Use
  Company Number: CA-JNJFOC-20230871572

PATIENT
  Age: 58 Year
  Sex: Female

DRUGS (4)
  1. SIMPONI [Suspect]
     Active Substance: GOLIMUMAB
     Indication: Rheumatoid arthritis
     Route: 058
     Dates: start: 20080201
  2. SIMPONI [Suspect]
     Active Substance: GOLIMUMAB
     Indication: Myotonic dystrophy
     Dosage: LAST INJECTION WAS ON 30-AUG-2023
     Route: 058
  3. SIMPONI [Suspect]
     Active Substance: GOLIMUMAB
     Route: 058
     Dates: start: 20210903
  4. SIMPONI [Suspect]
     Active Substance: GOLIMUMAB
     Route: 058
     Dates: start: 20230830

REACTIONS (5)
  - Nephrolithiasis [Recovering/Resolving]
  - Renal haematoma [Not Recovered/Not Resolved]
  - Stent removal [Unknown]
  - Intra-abdominal haematoma [Recovered/Resolved]
  - Pyrexia [Unknown]

NARRATIVE: CASE EVENT DATE: 20230825
